FAERS Safety Report 25879124 (Version 2)
Quarter: 2025Q4

REPORT INFORMATION
  Report Type: Spontaneous
  Country: US (occurrence: US)
  Receive Date: 20251003
  Receipt Date: 20251009
  Transmission Date: 20260118
  Serious: No
  Sender: ELI LILLY AND COMPANY
  Company Number: US-ELI_LILLY_AND_COMPANY-US202509027326

PATIENT
  Age: 35 Year
  Sex: Female

DRUGS (14)
  1. ZEPBOUND [Suspect]
     Active Substance: TIRZEPATIDE
     Indication: Sleep apnoea syndrome
     Dosage: 2.5 MG, WEEKLY (1/W)
     Route: 058
  2. ZEPBOUND [Suspect]
     Active Substance: TIRZEPATIDE
     Indication: Sleep apnoea syndrome
     Dosage: 2.5 MG, WEEKLY (1/W)
     Route: 058
  3. ZEPBOUND [Suspect]
     Active Substance: TIRZEPATIDE
     Indication: Sleep apnoea syndrome
     Dosage: 2.5 MG, WEEKLY (1/W)
     Route: 058
  4. ZEPBOUND [Suspect]
     Active Substance: TIRZEPATIDE
     Indication: Sleep apnoea syndrome
     Dosage: 2.5 MG, WEEKLY (1/W)
     Route: 058
  5. ZEPBOUND [Suspect]
     Active Substance: TIRZEPATIDE
     Indication: Sleep apnoea syndrome
     Dosage: 2.5 MG, WEEKLY (1/W)
     Route: 058
  6. ZEPBOUND [Suspect]
     Active Substance: TIRZEPATIDE
     Indication: Sleep apnoea syndrome
     Dosage: 2.5 MG, WEEKLY (1/W)
     Route: 058
  7. ZEPBOUND [Suspect]
     Active Substance: TIRZEPATIDE
     Indication: Sleep apnoea syndrome
     Dosage: 2.5 MG, WEEKLY (1/W)
     Route: 058
  8. ZEPBOUND [Suspect]
     Active Substance: TIRZEPATIDE
     Dosage: 2.5 MG, WEEKLY (1/W)
     Route: 058
  9. ZEPBOUND [Suspect]
     Active Substance: TIRZEPATIDE
     Dosage: 2.5 MG, WEEKLY (1/W)
     Route: 058
  10. ZEPBOUND [Suspect]
     Active Substance: TIRZEPATIDE
     Dosage: 2.5 MG, WEEKLY (1/W)
     Route: 058
  11. ZEPBOUND [Suspect]
     Active Substance: TIRZEPATIDE
     Dosage: 2.5 MG, WEEKLY (1/W)
     Route: 058
  12. ZEPBOUND [Suspect]
     Active Substance: TIRZEPATIDE
     Dosage: 2.5 MG, WEEKLY (1/W)
     Route: 058
  13. ZEPBOUND [Suspect]
     Active Substance: TIRZEPATIDE
     Dosage: 2.5 MG, WEEKLY (1/W)
     Route: 058
  14. ZEPBOUND [Suspect]
     Active Substance: TIRZEPATIDE
     Dosage: 2.5 MG, WEEKLY (1/W)
     Route: 058

REACTIONS (8)
  - Myalgia [Recovered/Resolved]
  - Accidental underdose [Unknown]
  - Underdose [Unknown]
  - Product dose omission issue [Unknown]
  - Injection site pain [Unknown]
  - Injection site injury [Unknown]
  - Nausea [Recovered/Resolved]
  - Fatigue [Recovered/Resolved]

NARRATIVE: CASE EVENT DATE: 20250901
